FAERS Safety Report 10934070 (Version 1)
Quarter: 2015Q1

REPORT INFORMATION
  Report Type: Spontaneous
  Country: FR (occurrence: None)
  Receive Date: 20150318
  Receipt Date: 20150318
  Transmission Date: 20150721
  Serious: Yes (Death, Life-Threatening, Other)
  Sender: FDA-Public Use
  Company Number: 2793062

PATIENT
  Age: 41 Year
  Sex: Male

DRUGS (1)
  1. DEXMEDETOMIDINE HYDROCHLORIDE. [Suspect]
     Active Substance: DEXMEDETOMIDINE HYDROCHLORIDE
     Indication: SEDATION
     Dosage: (NOT OTHERWISE SPECIFIED)
     Route: 042
     Dates: start: 20150127, end: 20150128

REACTIONS (6)
  - Cardiac arrest [None]
  - Hypotension [None]
  - Thrombocytopenia [None]
  - Atrioventricular block [None]
  - Hypoxia [None]
  - Arrhythmia [None]

NARRATIVE: CASE EVENT DATE: 201501
